FAERS Safety Report 16711309 (Version 1)
Quarter: 2019Q3

REPORT INFORMATION
  Report Type: Report from Study
  Country: BE (occurrence: BE)
  Receive Date: 20190816
  Receipt Date: 20190816
  Transmission Date: 20191004
  Serious: Yes (Hospitalization)
  Sender: FDA-Public Use
  Company Number: BE-JNJFOC-20190811933

PATIENT
  Age: 50 Year
  Sex: Female
  Weight: 95 kg

DRUGS (1)
  1. ESKETAMINE [Suspect]
     Active Substance: ESKETAMINE
     Indication: DEPRESSION
     Dates: start: 20170214, end: 20190806

REACTIONS (1)
  - Animal bite [Recovering/Resolving]

NARRATIVE: CASE EVENT DATE: 20190807
